FAERS Safety Report 9845343 (Version 2)
Quarter: 2014Q1

REPORT INFORMATION
  Report Type: Report from Study
  Country: JP (occurrence: JP)
  Receive Date: 20140127
  Receipt Date: 20140301
  Transmission Date: 20141002
  Serious: Yes (Death, Hospitalization)
  Sender: FDA-Public Use
  Company Number: JP-ASTRAZENECA-2014SE05403

PATIENT
  Age: 89 Year
  Sex: Male
  Weight: 35 kg

DRUGS (13)
  1. NEXIUM [Suspect]
     Indication: PROPHYLAXIS AGAINST GASTROINTESTINAL ULCER
     Route: 048
     Dates: start: 20130315, end: 20131001
  2. BUFFERIN [Concomitant]
     Indication: MYOCARDIAL INFARCTION
     Route: 065
     Dates: start: 20130315
  3. ARTIST [Concomitant]
     Indication: HYPERTENSION
     Route: 048
     Dates: end: 20130425
  4. SALOBEL [Concomitant]
     Indication: HYPERURICAEMIA
     Route: 048
  5. MUCOSTA [Concomitant]
     Route: 048
  6. RENIVEZE [Concomitant]
     Indication: CARDIAC FAILURE CONGESTIVE
     Route: 048
  7. LUPRAC [Concomitant]
     Indication: CARDIAC FAILURE CONGESTIVE
     Route: 048
     Dates: start: 20130501, end: 20130812
  8. ADOAIR [Concomitant]
     Indication: ASTHMA
     Route: 055
  9. XALATAN [Concomitant]
     Indication: GLAUCOMA
     Dosage: DOSE UNKNOWN
     Route: 047
  10. ROCEPHIN [Concomitant]
     Indication: PNEUMONIA BACTERIAL
     Route: 065
     Dates: start: 20130315, end: 20130402
  11. FRANDOL [Concomitant]
     Indication: MYOCARDIAL INFARCTION
     Route: 062
  12. HOKUNALIN [Concomitant]
     Indication: ASTHMA
     Route: 062
  13. NIKORANMART [Concomitant]
     Indication: MYOCARDIAL INFARCTION
     Route: 048
     Dates: start: 20130814, end: 20131001

REACTIONS (3)
  - Blood creatine phosphokinase increased [Recovering/Resolving]
  - Pneumonia [Recovered/Resolved]
  - Cardiac failure [Fatal]
